FAERS Safety Report 8332731-5 (Version None)
Quarter: 2012Q2

REPORT INFORMATION
  Report Type: 
  Country: None (occurrence: None)
  Receive Date: 20120503
  Receipt Date: 20120424
  Transmission Date: 20120825
  Serious: Yes (Hospitalization)
  Sender: FDA-Public Use
  Company Number: GR-US-EMD SERONO, INC.-7128194

PATIENT
  Age: 38 Year
  Sex: Female

DRUGS (6)
  1. REBIF [Suspect]
     Indication: MULTIPLE SCLEROSIS
     Dates: start: 20120228
  2. CENTRAC (CENTRACLIN) [Concomitant]
     Indication: DEPRESSION
  3. FILICINE [Concomitant]
     Indication: DEPRESSION
  4. CYMBALTA [Concomitant]
     Indication: DEPRESSION
  5. SENAR [Concomitant]
     Indication: DEPRESSION
  6. PRILOSEC [Concomitant]
     Indication: DEPRESSION

REACTIONS (5)
  - HEADACHE [None]
  - ARRHYTHMIA [None]
  - NAUSEA [None]
  - LOSS OF CONSCIOUSNESS [None]
  - AUTONOMIC NERVOUS SYSTEM IMBALANCE [None]
